FAERS Safety Report 24765467 (Version 1)
Quarter: 2024Q4

REPORT INFORMATION
  Report Type: Report from Study
  Country: US (occurrence: US)
  Receive Date: 20241223
  Receipt Date: 20241223
  Transmission Date: 20250114
  Serious: No
  Sender: ROCHE
  Company Number: US-ROCHE-10000161098

PATIENT
  Age: 34 Year
  Sex: Female

DRUGS (1)
  1. OCREVUS [Suspect]
     Active Substance: OCRELIZUMAB
     Indication: Relapsing multiple sclerosis
     Dosage: DATE OF TREATMENT FOR 2ND HALF INFUSION : 16-MAY-2023?DATE OF MOST RECENT INFUSION : 16-NOV-2023
     Route: 042
     Dates: start: 20230501

REACTIONS (3)
  - Desquamative inflammatory vaginitis [Not Recovered/Not Resolved]
  - Bacterial test positive [Not Recovered/Not Resolved]
  - Immunosuppression [Not Recovered/Not Resolved]
